FAERS Safety Report 5736746-2 (Version None)
Quarter: 2008Q2

REPORT INFORMATION
  Report Type: 
  Country: None (occurrence: None)
  Receive Date: 20080513
  Receipt Date: 20080509
  Transmission Date: 20081010
  Serious: Yes (Hospitalization)
  Sender: FDA-Public Use
  Company Number: US-BOEHRINGER INGELHEIM GMBH, GERMANY-2008-BP-05616BP

PATIENT
  Sex: Male
  Weight: 69 kg

DRUGS (11)
  1. APTIVUS/RITONAVIR CAPSULES [Suspect]
     Indication: HIV INFECTION
     Route: 048
     Dates: start: 20060901, end: 20080319
  2. EPIVIR [Concomitant]
     Route: 048
  3. ZERIT [Concomitant]
  4. FUZEON [Concomitant]
     Route: 058
  5. NORVIR [Concomitant]
  6. ACYCLOVIR SODIUM [Concomitant]
     Route: 048
  7. BACTRIM DS [Concomitant]
     Route: 048
  8. CARDIZEM [Concomitant]
  9. PRINIVIL [Concomitant]
     Route: 048
  10. SPORANOX [Concomitant]
  11. NEURONTIN [Concomitant]

REACTIONS (8)
  - BLOOD CREATININE INCREASED [None]
  - BRAIN ABSCESS [None]
  - CHRONIC SINUSITIS [None]
  - CONVULSION [None]
  - HAEMORRHAGE INTRACRANIAL [None]
  - SINUSITIS [None]
  - SUBARACHNOID HAEMORRHAGE [None]
  - SYNCOPE [None]
